FAERS Safety Report 21813494 (Version 1)
Quarter: 2023Q1

REPORT INFORMATION
  Report Type: Spontaneous
  Country: JP (occurrence: JP)
  Receive Date: 20230103
  Receipt Date: 20230103
  Transmission Date: 20230417
  Serious: Yes (Other)
  Sender: FDA-Public Use
  Company Number: JP-STRIDES ARCOLAB LIMITED-2023SP000054

PATIENT
  Age: 3 Year
  Sex: Male

DRUGS (9)
  1. ETOPOSIDE [Suspect]
     Active Substance: ETOPOSIDE
     Indication: Congenital retinoblastoma
     Dosage: UNK, CYCLICAL (8 CYCLES)
  2. CARBOPLATIN [Suspect]
     Active Substance: CARBOPLATIN
     Indication: Congenital retinoblastoma
     Dosage: UNK, CYCLICAL (8 CYCLES)
  3. DOXORUBICIN [Suspect]
     Active Substance: DOXORUBICIN
     Indication: Congenital retinoblastoma
     Dosage: UNK, CYCLICAL (6 MORE CYCLES)
  4. VINCRISTINE [Suspect]
     Active Substance: VINCRISTINE
     Indication: Congenital retinoblastoma
     Dosage: UNK, CYCLICAL (8 CYCLES)
  5. VINCRISTINE [Suspect]
     Active Substance: VINCRISTINE
     Dosage: UNK, CYCLICAL (6 MORE CYCLES)
  6. MELPHALAN [Suspect]
     Active Substance: MELPHALAN
     Indication: Congenital retinoblastoma
     Dosage: UNK, CYCLICAL (8 CYCLES)
     Route: 013
  7. MELPHALAN [Suspect]
     Active Substance: MELPHALAN
     Dosage: UNK, CYCLICAL (2 CYCLES: INJECTION)
  8. TOPOTECAN [Suspect]
     Active Substance: TOPOTECAN HYDROCHLORIDE
     Indication: Congenital retinoblastoma
     Dosage: UNK, CYCLICAL (8 CYCLES)
     Route: 013
  9. CYCLOPHOSPHAMIDE [Suspect]
     Active Substance: CYCLOPHOSPHAMIDE
     Indication: Congenital retinoblastoma
     Dosage: UNK, CYCLICAL (6 MORE CYCLES)

REACTIONS (3)
  - Staphyloma [Unknown]
  - Drug ineffective [Unknown]
  - Off label use [Unknown]
